FAERS Safety Report 7059705-9 (Version None)
Quarter: 2010Q4

REPORT INFORMATION
  Report Type: 
  Country: None (occurrence: None)
  Receive Date: 20101025
  Receipt Date: 20101021
  Transmission Date: 20110411
  Serious: Yes (Hospitalization)
  Sender: FDA-Public Use
  Company Number: FR-BRISTOL-MYERS SQUIBB COMPANY-15346448

PATIENT
  Age: 30 Year
  Sex: Female

DRUGS (1)
  1. ABILIFY [Suspect]
     Indication: SCHIZOPHRENIA
     Dosage: RE-INTRODUCED AT 30 MG/DAY.2MONTHS
     Dates: start: 20090701

REACTIONS (2)
  - DELUSION [None]
  - DRUG INEFFECTIVE [None]
